FAERS Safety Report 7178736-1 (Version None)
Quarter: 2010Q4

REPORT INFORMATION
  Report Type: 
  Country: None (occurrence: None)
  Receive Date: 20101209
  Receipt Date: 20101122
  Transmission Date: 20110411
  Serious: Yes (Other)
  Sender: FDA-Public Use
  Company Number: 2010P1002844

PATIENT
  Age: 74 Year
  Sex: Female

DRUGS (8)
  1. AMIODARONE HCL [Suspect]
     Dosage: 400 MG; QD;
  2. FLUNARIZINE (NO PREF. NAME) [Suspect]
     Dosage: 10 MG; QD;
  3. LEVOTHYROXINE [Concomitant]
  4. CAPTOPRIL [Concomitant]
  5. TRIMETAZIDINE [Concomitant]
  6. LEVODOPA + BENSERAZIDE [Concomitant]
  7. BIPERIDEN HYDROCHLORIDE TAB [Concomitant]
  8. AMANTADINE [Concomitant]

REACTIONS (15)
  - ABASIA [None]
  - ACTIVITIES OF DAILY LIVING IMPAIRED [None]
  - APRAXIA [None]
  - CEREBRAL ATROPHY [None]
  - CEREBRAL VENTRICLE DILATATION [None]
  - COGNITIVE DISORDER [None]
  - DYSARTHRIA [None]
  - DYSPHAGIA [None]
  - DYSSTASIA [None]
  - FALL [None]
  - GAZE PALSY [None]
  - PARKINSONISM [None]
  - PNEUMONIA ASPIRATION [None]
  - SUPRANUCLEAR PALSY [None]
  - WEIGHT INCREASED [None]
